FAERS Safety Report 7984466-6 (Version None)
Quarter: 2011Q4

REPORT INFORMATION
  Report Type: 
  Country: None (occurrence: None)
  Receive Date: 20111214
  Receipt Date: 20111128
  Transmission Date: 20120403
  Serious: Yes (Death)
  Sender: FDA-Public Use
  Company Number: EU-2011-10273

PATIENT
  Sex: Male

DRUGS (2)
  1. SAMSCA [Suspect]
     Indication: INAPPROPRIATE ANTIDIURETIC HORMONE SECRETION
     Dosage: 7.5 MG MILLIGRAM(S)
  2. SAMSCA [Suspect]
     Indication: OFF LABEL USE
     Dosage: 7.5 MG MILLIGRAM(S)

REACTIONS (1)
  - WRONG TECHNIQUE IN DRUG USAGE PROCESS [None]
